FAERS Safety Report 4777569-0 (Version None)
Quarter: 2005Q3

REPORT INFORMATION
  Report Type: 
  Country: None (occurrence: None)
  Receive Date: 20050915
  Receipt Date: 20050901
  Transmission Date: 20060218
  Serious: Yes (Hospitalization)
  Sender: FDA-Public Use
  Company Number: 2005BI016519

PATIENT
  Age: 51 Year
  Sex: Male

DRUGS (1)
  1. AVONEX [Suspect]
     Dosage: 30 UG;QW; IM
     Route: 030

REACTIONS (4)
  - HIP ARTHROPLASTY [None]
  - OSTEOARTHRITIS [None]
  - SPINAL COLUMN STENOSIS [None]
  - WHEELCHAIR USER [None]
